FAERS Safety Report 24439356 (Version 1)
Quarter: 2024Q4

REPORT INFORMATION
  Report Type: Spontaneous
  Country: US (occurrence: US)
  Receive Date: 20241015
  Receipt Date: 20241015
  Transmission Date: 20250115
  Serious: No
  Sender: MERCK
  Company Number: US-009507513-2410USA005368

PATIENT
  Sex: Female

DRUGS (1)
  1. CUBICIN [Suspect]
     Active Substance: DAPTOMYCIN

REACTIONS (1)
  - Drug hypersensitivity [Unknown]
